FAERS Safety Report 8536013-8 (Version None)
Quarter: 2012Q3

REPORT INFORMATION
  Report Type: 
  Country: None (occurrence: None)
  Receive Date: 20120725
  Receipt Date: 20120724
  Transmission Date: 20120928
  Serious: Yes (Death, Other)
  Sender: FDA-Public Use
  Company Number: PHEH2007US09955

PATIENT
  Sex: Female
  Weight: 92.971 kg

DRUGS (21)
  1. CARBOPLATIN [Concomitant]
  2. COUMADIN [Concomitant]
     Dosage: 5 MG, UNK
     Route: 048
  3. ATIVAN [Concomitant]
  4. ALLEGRA [Concomitant]
  5. DURAGESIC-100 [Concomitant]
     Dosage: 25 UG/HR, UNK
  6. ZOMETA [Suspect]
     Indication: BREAST CANCER
     Dosage: 4 MG,
  7. BENADRYL [Concomitant]
  8. PROTONIX [Concomitant]
  9. DECADRON [Concomitant]
  10. LOVENOX [Concomitant]
  11. LIPITOR [Concomitant]
     Route: 048
  12. ZOCOR [Concomitant]
  13. CALCIUM [Concomitant]
     Dosage: 1000 MG, QD
  14. PREMARIN [Concomitant]
     Dosage: 0.625 MG, QD
  15. FEMARA [Concomitant]
  16. RHINOCORT [Concomitant]
  17. FLAGYL [Concomitant]
     Dosage: 500 MG, TID
     Route: 048
  18. CENTRUM [Concomitant]
     Dosage: 1 DF, QD
  19. SIMETHICONE [Concomitant]
     Dosage: 160 MG, UNK
     Route: 048
  20. ZOFRAN [Concomitant]
  21. ALDACTONE [Concomitant]
     Dosage: 50 MG, QD
     Route: 048

REACTIONS (79)
  - ANXIETY [None]
  - HYPOPHAGIA [None]
  - LYMPHADENOPATHY [None]
  - DYSPONESIS [None]
  - LUNG INFILTRATION [None]
  - METASTASES TO BONE [None]
  - JOINT EFFUSION [None]
  - RHINORRHOEA [None]
  - EPISTAXIS [None]
  - SINUS HEADACHE [None]
  - EAR PAIN [None]
  - URINARY TRACT INFECTION [None]
  - FATIGUE [None]
  - PAIN [None]
  - PERIODONTITIS [None]
  - MITRAL VALVE INCOMPETENCE [None]
  - COAGULOPATHY [None]
  - OROPHARYNGEAL PAIN [None]
  - PARONYCHIA [None]
  - DEATH [None]
  - OSTEONECROSIS OF JAW [None]
  - LIFE EXPECTANCY SHORTENED [None]
  - ORAL PAIN [None]
  - METASTASES TO CENTRAL NERVOUS SYSTEM [None]
  - METASTASES TO LIVER [None]
  - DEAFNESS [None]
  - TRICUSPID VALVE INCOMPETENCE [None]
  - OSTEOPOROSIS [None]
  - HYPERTENSION [None]
  - SINUSITIS [None]
  - VOMITING [None]
  - NECK PAIN [None]
  - OEDEMA PERIPHERAL [None]
  - LOOSE TOOTH [None]
  - EXPOSED BONE IN JAW [None]
  - ANHEDONIA [None]
  - MEASLES [None]
  - AUTONOMIC NERVOUS SYSTEM IMBALANCE [None]
  - PLEURAL EFFUSION [None]
  - ABDOMINAL PAIN [None]
  - PYREXIA [None]
  - ARTHRALGIA [None]
  - INFECTION [None]
  - BONE EROSION [None]
  - DISCOMFORT [None]
  - METASTASES TO LUNG [None]
  - SPLENOMEGALY [None]
  - ASCITES [None]
  - GALLBLADDER DISORDER [None]
  - ORAL DISORDER [None]
  - BACK PAIN [None]
  - BONE DISORDER [None]
  - PRIMARY SEQUESTRUM [None]
  - CONFUSIONAL STATE [None]
  - VASOGENIC CEREBRAL OEDEMA [None]
  - PATHOLOGICAL FRACTURE [None]
  - DEEP VEIN THROMBOSIS [None]
  - VISION BLURRED [None]
  - GAIT DISTURBANCE [None]
  - EMOTIONAL DISTRESS [None]
  - APPENDICITIS [None]
  - BONE LESION [None]
  - SPINAL OSTEOARTHRITIS [None]
  - UPPER-AIRWAY COUGH SYNDROME [None]
  - BLOOD CHOLESTEROL INCREASED [None]
  - CONTUSION [None]
  - DIZZINESS [None]
  - ANAEMIA [None]
  - PAIN IN JAW [None]
  - DEFORMITY [None]
  - DYSKINESIA [None]
  - DIVERTICULUM INTESTINAL [None]
  - ATELECTASIS [None]
  - RIB FRACTURE [None]
  - DEVICE MALFUNCTION [None]
  - DYSPHAGIA [None]
  - DYSPHONIA [None]
  - RHINITIS ALLERGIC [None]
  - TRAUMATIC HAEMATOMA [None]
